FAERS Safety Report 6740800-6 (Version None)
Quarter: 2010Q2

REPORT INFORMATION
  Report Type: 
  Country: None (occurrence: None)
  Receive Date: 20100525
  Receipt Date: 20100525
  Transmission Date: 20101027
  Serious: Yes (Hospitalization)
  Sender: FDA-Public Use
  Company Number: None

PATIENT
  Sex: Female
  Weight: 138 kg

DRUGS (2)
  1. CISPLATIN [Suspect]
     Dosage: 350 MG
  2. COUMADIN [Concomitant]

REACTIONS (3)
  - EROSIVE OESOPHAGITIS [None]
  - INTERNATIONAL NORMALISED RATIO INCREASED [None]
  - MELAENA [None]
